FAERS Safety Report 21979950 (Version 1)
Quarter: 2023Q1

REPORT INFORMATION
  Report Type: Report from Study
  Country: ID (occurrence: None)
  Receive Date: 20230210
  Receipt Date: 20230210
  Transmission Date: 20230418
  Serious: Yes (Death)
  Sender: FDA-Public Use
  Company Number: 2023A033306

PATIENT
  Age: 16814 Day
  Sex: Female

DRUGS (3)
  1. FASLODEX [Suspect]
     Active Substance: FULVESTRANT
     Indication: Breast cancer
     Route: 030
     Dates: start: 20190328
  2. FASLODEX [Suspect]
     Active Substance: FULVESTRANT
     Indication: Hormone receptor positive breast cancer
     Route: 030
     Dates: start: 20190328
  3. FASLODEX [Suspect]
     Active Substance: FULVESTRANT
     Indication: HER2 positive breast cancer
     Route: 030
     Dates: start: 20190328

REACTIONS (1)
  - Death [Fatal]

NARRATIVE: CASE EVENT DATE: 20230115
